FAERS Safety Report 6218247-0 (Version None)
Quarter: 2009Q2

REPORT INFORMATION
  Report Type: 
  Country: None (occurrence: None)
  Receive Date: 20090604
  Receipt Date: 20090604
  Transmission Date: 20091009
  Serious: Yes (Other)
  Sender: FDA-Public Use
  Company Number: None

PATIENT
  Sex: Male
  Weight: 104.3273 kg

DRUGS (1)
  1. VIAGRA [Suspect]
     Indication: ERECTILE DYSFUNCTION
     Dosage: AS NEEDED PO
     Route: 048
     Dates: start: 20020101, end: 20090603

REACTIONS (4)
  - FLUSHING [None]
  - HEADACHE [None]
  - HYPOACUSIS [None]
  - TINNITUS [None]
